FAERS Safety Report 8969911 (Version 1)
Quarter: 2012Q4

REPORT INFORMATION
  Report Type: 
  Country: US (occurrence: US)
  Receive Date: 20121218
  Receipt Date: 20121218
  Transmission Date: 20130627
  Serious: No
  Sender: FDA-Public Use
  Company Number: US-BRISTOL-MYERS SQUIBB COMPANY-16224529

PATIENT
  Age: 9 Year
  Sex: Male

DRUGS (6)
  1. ABILIFY TABS 2 MG [Suspect]
     Dosage: Duartion:1.5years
  2. FOCALIN [Concomitant]
     Dosage: *AM,2PM
  3. GUANFACINE [Concomitant]
  4. MELATONIN [Concomitant]
  5. VITAMIN B6 [Concomitant]
  6. MAGNESIUM [Concomitant]

REACTIONS (4)
  - Aggression [Unknown]
  - Increased appetite [Unknown]
  - Mood altered [Unknown]
  - Weight increased [Unknown]
